FAERS Safety Report 8619007-3 (Version None)
Quarter: 2012Q3

REPORT INFORMATION
  Report Type: 
  Country: None (occurrence: None)
  Receive Date: 20120824
  Receipt Date: 20120821
  Transmission Date: 20120928
  Serious: Yes (Hospitalization)
  Sender: FDA-Public Use
  Company Number: PHHO2012DE012211

PATIENT
  Sex: Female
  Weight: 67 kg

DRUGS (7)
  1. XYLOCAINE [Concomitant]
     Indication: STOMATITIS
     Dosage: 3XDIE
     Route: 048
     Dates: start: 20120808
  2. ERGOCALCIFEROL [Concomitant]
     Indication: PROPHYLAXIS
     Dosage: 1000 I.E.
     Route: 048
     Dates: start: 19970101
  3. CALCIUM [Concomitant]
     Indication: PROPHYLAXIS
     Dosage: 1000 MG DAILY
     Dates: start: 19970101
  4. ACYCLOVIR [Concomitant]
     Indication: HERPES ZOSTER
     Dosage: 400 MG DAILY
     Dates: start: 20120720
  5. EVEROLIMUS [Suspect]
     Dosage: 5 MG DAILY
     Route: 048
     Dates: start: 20120808, end: 20120812
  6. EXEMESTANE [Suspect]
     Indication: BREAST CANCER
     Dosage: 25 MG DAILY
     Dates: start: 20120728, end: 20120812
  7. EVEROLIMUS [Suspect]
     Indication: BREAST CANCER
     Dosage: 10 MG DAILY
     Route: 048
     Dates: start: 20120728, end: 20120807

REACTIONS (2)
  - STOMATITIS [None]
  - HYPOPHAGIA [None]
